FAERS Safety Report 10177285 (Version 1)
Quarter: 2014Q2

REPORT INFORMATION
  Report Type: Spontaneous
  Country: DE (occurrence: DE)
  Receive Date: 20140516
  Receipt Date: 20140516
  Transmission Date: 20141212
  Serious: Yes (Other)
  Sender: FDA-Public Use
  Company Number: DE-AMGEN INC.-DEUSP2014034690

PATIENT
  Sex: Male

DRUGS (1)
  1. XGEVA [Suspect]
     Indication: METASTASES TO BONE
     Dosage: UNK
     Route: 065
     Dates: start: 2013

REACTIONS (3)
  - Osteomyelitis [Unknown]
  - Fistula [Unknown]
  - Tooth abscess [Unknown]
